FAERS Safety Report 4972257-X (Version None)
Quarter: 2006Q1

REPORT INFORMATION
  Report Type: 
  Country: None (occurrence: None)
  Receive Date: 20060214
  Receipt Date: 20041216
  Transmission Date: 20060701
  Serious: Yes (Other)
  Sender: FDA-Public Use
  Company Number: WAES 0412USA02065

PATIENT
  Age: 68 Year
  Sex: Female
  Weight: 61.2356 kg

DRUGS (3)
  1. TRUSOPT [Suspect]
     Indication: GLAUCOMA
     Dosage: 2 DROPS/BID/OPHT
     Route: 047
     Dates: start: 20040901, end: 20041001
  2. TRUSOPT [Suspect]
     Indication: GLAUCOMA
     Dosage: 2 DROPS/BID/OPHT
     Route: 047
     Dates: start: 20041001
  3. XALATAN [Concomitant]

REACTIONS (1)
  - EYE IRRITATION [None]
